FAERS Safety Report 8392357-4 (Version None)
Quarter: 2012Q2

REPORT INFORMATION
  Report Type: 
  Country: None (occurrence: None)
  Receive Date: 20120529
  Receipt Date: 20120518
  Transmission Date: 20120825
  Serious: Yes (Other)
  Sender: FDA-Public Use
  Company Number: JP-VERTEX PHARMACEUTICALS INC.-AE-2012-007679

PATIENT
  Age: 69 Year
  Sex: Female

DRUGS (11)
  1. RIBAVIRIN [Concomitant]
     Route: 048
     Dates: start: 20120221, end: 20120305
  2. RIBAVIRIN [Concomitant]
     Route: 048
     Dates: start: 20120306
  3. FAMOTIDINE [Concomitant]
     Route: 048
  4. TELAVIC (TELAPREVIR) [Suspect]
     Route: 048
     Dates: start: 20120323, end: 20120504
  5. PEGINTERFERON ALFA-2B [Concomitant]
     Route: 051
     Dates: start: 20120228
  6. PEGINTERFERON ALFA-2B [Concomitant]
     Indication: HEPATITIS C
     Route: 051
     Dates: start: 20120207, end: 20120221
  7. RIBAVIRIN [Concomitant]
     Indication: HEPATITIS C
     Route: 048
     Dates: start: 20120207, end: 20120220
  8. MUCOSTA [Concomitant]
     Route: 048
     Dates: end: 20120330
  9. MARZULENE-S [Concomitant]
     Route: 048
     Dates: end: 20120330
  10. URSO 250 [Concomitant]
     Route: 048
     Dates: end: 20120420
  11. TELAVIC (TELAPREVIR) [Suspect]
     Indication: HEPATITIS C
     Route: 048
     Dates: start: 20120207, end: 20120322

REACTIONS (2)
  - WHITE BLOOD CELL COUNT DECREASED [None]
  - HAEMOGLOBIN DECREASED [None]
